FAERS Safety Report 15895818 (Version 21)
Quarter: 2020Q4

REPORT INFORMATION
  Report Type: Report from Study
  Country: US (occurrence: US)
  Receive Date: 20190131
  Receipt Date: 20201101
  Transmission Date: 20210113
  Serious: Yes (Hospitalization)
  Sender: FDA-Public Use
  Company Number: US-ROCHE-2252311

PATIENT
  Age: 60 Year
  Sex: Male
  Weight: 87.6 kg

DRUGS (17)
  1. METOPROLOL TARTRATE. [Concomitant]
     Active Substance: METOPROLOL TARTRATE
     Dates: start: 20190120
  2. PREDNISONE. [Concomitant]
     Active Substance: PREDNISONE
     Indication: RASH MACULO-PAPULAR
     Route: 048
     Dates: start: 20181114
  3. GEMCITABINE. [Suspect]
     Active Substance: GEMCITABINE
     Indication: PANCREATIC CARCINOMA METASTATIC
     Dosage: ON DAYS 1, 8, AND 15 OF EACH 28 DAY CYCLE?MOST RECENT DOSE OF GEMCITABINE 2000 (UNIT NOT REPORTED) P
     Route: 042
     Dates: start: 20181101
  4. TRIAMCINOLONE ACETONIDE. [Concomitant]
     Active Substance: TRIAMCINOLONE ACETONIDE
     Indication: RASH MACULO-PAPULAR
     Route: 062
     Dates: start: 20181107
  5. PREDNISONE. [Concomitant]
     Active Substance: PREDNISONE
     Dates: start: 20190213, end: 20190220
  6. AMOXICILLIN. [Concomitant]
     Active Substance: AMOXICILLIN
     Route: 048
     Dates: start: 20190605, end: 20190609
  7. OMEPRAZOLE. [Concomitant]
     Active Substance: OMEPRAZOLE
     Indication: GASTROOESOPHAGEAL REFLUX DISEASE
     Route: 048
     Dates: start: 201401
  8. CREON [Concomitant]
     Active Substance: PANCRELIPASE AMYLASE\PANCRELIPASE LIPASE\PANCRELIPASE PROTEASE
     Route: 048
     Dates: start: 20181019
  9. IBUPROFEN. [Concomitant]
     Active Substance: IBUPROFEN
     Indication: PYREXIA
     Route: 048
     Dates: start: 20181102
  10. METOPROLOL TARTRATE. [Concomitant]
     Active Substance: METOPROLOL TARTRATE
     Indication: CARDIOVASCULAR EVENT PROPHYLAXIS
     Dates: start: 2013
  11. PANCRELIPASE. [Concomitant]
     Active Substance: PANCRELIPASE
     Dosage: DOSE: 24,000 UNITS
     Route: 048
     Dates: start: 20181019
  12. GABAPENTIN. [Concomitant]
     Active Substance: GABAPENTIN
     Indication: NEURALGIA
     Dates: start: 20181101
  13. SELICRELUMAB. [Suspect]
     Active Substance: SELICRELUMAB
     Indication: PANCREATIC CARCINOMA METASTATIC
     Dosage: ON DAY 1 OF CYCLES 1-4 AND EVERY THIRD CYCLE THEREAFTER (I.E. CYCLES 7, 10, 13 ETC.) OF EACH 28-DAY
     Route: 058
     Dates: start: 20181101
  14. ATEZOLIZUMAB. [Suspect]
     Active Substance: ATEZOLIZUMAB
     Indication: PANCREATIC CARCINOMA METASTATIC
     Dosage: ON DAYS 1 AND 15 OF EACH 28 DAY CYCLE?MOST RECENT DOSE OF ATEZOLIZUMAB 840 MG PRIOR TO SAE ONSET ON:
     Route: 041
     Dates: start: 20181101
  15. NAB-PACLITAXEL [Suspect]
     Active Substance: PACLITAXEL
     Indication: PANCREATIC CARCINOMA METASTATIC
     Dosage: ON DAYS 1, 8, AND 15 OF EACH 28 DAY CYCLE?MOST RECENT DOSE OF NAB-PACLITAXEL 250 (UNIT NOT REPORTED)
     Route: 042
     Dates: start: 20181101
  16. ENOXAPARIN [Concomitant]
     Active Substance: ENOXAPARIN
     Indication: ATRIAL FIBRILLATION
     Route: 058
     Dates: start: 20190416, end: 20190513
  17. FUROSEMIDE. [Concomitant]
     Active Substance: FUROSEMIDE
     Dates: start: 20190219

REACTIONS (5)
  - Pneumonitis [Recovered/Resolved]
  - Cholecystitis [Recovered/Resolved]
  - Pneumonia [Recovered/Resolved]
  - Pyrexia [Not Recovered/Not Resolved]
  - Pneumonitis [Not Recovered/Not Resolved]

NARRATIVE: CASE EVENT DATE: 20190118
